FAERS Safety Report 14488388 (Version 4)
Quarter: 2024Q1

REPORT INFORMATION
  Report Type: Report from Study
  Country: US (occurrence: US)
  Receive Date: 20180205
  Receipt Date: 20240214
  Transmission Date: 20240410
  Serious: Yes (Other)
  Sender: FDA-Public Use
  Company Number: US-MLMSERVICE-20180125-1052379-1

PATIENT
  Sex: Female

DRUGS (1)
  1. ZOLEDRONIC ACID [Suspect]
     Active Substance: ZOLEDRONIC ACID
     Dosage: UNK (LONGER THAN 2 YEARS (MEAN 4.8 YEARS, RANGE 2.0-13 YEARS)

REACTIONS (2)
  - Osteonecrosis of jaw [Recovered/Resolved]
  - Dental restoration failure [Recovered/Resolved]
